FAERS Safety Report 5314167-4 (Version None)
Quarter: 2007Q2

REPORT INFORMATION
  Report Type: 
  Country: None (occurrence: None)
  Receive Date: 20070426
  Receipt Date: 20070410
  Transmission Date: 20071010
  Serious: Yes (Life-Threatening, Hospitalization)
  Sender: FDA-Public Use
  Company Number: DSA_29451_2007

PATIENT
  Sex: Female

DRUGS (3)
  1. TAVOR /00273201/ (TAVOR)  0.5 MG [Suspect]
     Dosage: (25 MG 1X ORAL)
     Route: 048
     Dates: start: 20070214, end: 20070214
  2. RISPERIDONE [Suspect]
     Dosage: (INTRAMUSCULAR)
     Route: 030
     Dates: start: 20070214, end: 20070214
  3. TRICYCLIC ANTIDEPRESSANTS (TRICYCLIC ANTIDEPRESSANTS) [Suspect]
     Dates: start: 20070214, end: 20070214

REACTIONS (3)
  - HYPERTENSION [None]
  - MULTIPLE DRUG OVERDOSE [None]
  - SUICIDE ATTEMPT [None]
